FAERS Safety Report 10419574 (Version 8)
Quarter: 2015Q3

REPORT INFORMATION
  Report Type: Spontaneous
  Country: US (occurrence: US)
  Receive Date: 20140829
  Receipt Date: 20150910
  Transmission Date: 20151125
  Serious: Yes (Hospitalization)
  Sender: FDA-Public Use
  Company Number: US-PFIZER INC-2014239886

PATIENT
  Age: 77 Year
  Sex: Female

DRUGS (4)
  1. INLYTA [Suspect]
     Active Substance: AXITINIB
     Indication: METASTATIC RENAL CELL CARCINOMA
     Dosage: 1 MG, 2X/DAY
     Route: 048
     Dates: start: 20140604
  2. INLYTA [Suspect]
     Active Substance: AXITINIB
     Dosage: 2.5 MG, UNK
     Route: 048
     Dates: start: 20140804, end: 20140902
  3. INLYTA [Suspect]
     Active Substance: AXITINIB
     Dosage: 5 MG, UNK
     Route: 048
     Dates: start: 20140604, end: 20140703
  4. INLYTA [Suspect]
     Active Substance: AXITINIB
     Dosage: 2 MG, UNK
     Route: 048
     Dates: start: 20140903, end: 20141105

REACTIONS (10)
  - Abdominal distension [Unknown]
  - Asthenia [Recovered/Resolved]
  - Abdominal pain [Unknown]
  - Fatigue [Recovered/Resolved]
  - Weight decreased [Unknown]
  - Disease progression [Unknown]
  - Headache [Recovered/Resolved]
  - Malaise [Recovered/Resolved]
  - Dizziness [Recovered/Resolved]
  - Metastatic renal cell carcinoma [Unknown]

NARRATIVE: CASE EVENT DATE: 20140703
